FAERS Safety Report 6862649-6 (Version None)
Quarter: 2010Q3

REPORT INFORMATION
  Report Type: 
  Country: None (occurrence: None)
  Receive Date: 20100719
  Receipt Date: 20100628
  Transmission Date: 20110219
  Serious: Yes (Hospitalization)
  Sender: FDA-Public Use
  Company Number: 7009245

PATIENT
  Age: 82 Year
  Sex: Female

DRUGS (9)
  1. LEVOTHYROXINE SODIUM [Suspect]
     Indication: PRODUCT USED FOR UNKNOWN INDICATION
     Dosage: 1 DF (1 DF, 1 IN 1 D) ORAL
     Route: 048
  2. EXELON [Suspect]
     Indication: DEMENTIA ALZHEIMER'S TYPE
     Dosage: DF (1 DF,1 IN 1 D) TRANEDERMAL
     Route: 062
     Dates: end: 20100531
  3. MEMANTINE HYDROCHLORIDE [Concomitant]
  4. SEROPLEX (ESCITALOPRAM OXALATE) (ESOITALOPRAM OXALATE) [Concomitant]
  5. CETORNAN (ORNITHINE OXOGLURATE) (ORNITHINE OXOGLURATE) [Concomitant]
  6. IMOVANE (ZOPICLONE) (ZOPICLONE) [Concomitant]
  7. DIFFU K (POTASSIUM CHLORIDE) (POTASSIIUM CHLORIDE) [Concomitant]
  8. PLAVIX (CLOPIDOGREL)(CLOPIDOGREL) [Concomitant]
  9. AMLOR (AMLODIPINE BESILATE) (AMLODIPTNE BESILATE) [Concomitant]

REACTIONS (4)
  - BLOOD POTASSIUM DECREASED [None]
  - DIARRHOEA [None]
  - PHOBIA [None]
  - WEIGHT DECREASED [None]
